FAERS Safety Report 6044058-5 (Version None)
Quarter: 2009Q1

REPORT INFORMATION
  Report Type: 
  Country: None (occurrence: None)
  Receive Date: 20090115
  Receipt Date: 20090115
  Transmission Date: 20090719
  Serious: Yes (Other)
  Sender: FDA-Public Use
  Company Number: None

PATIENT
  Age: 41 Year
  Sex: Male
  Weight: 64.8644 kg

DRUGS (1)
  1. ASACOL [Suspect]
     Indication: GASTRITIS
     Dosage: 3  3 A DAY PO
     Route: 048
     Dates: start: 20050115, end: 20060117

REACTIONS (7)
  - AMNESIA [None]
  - ARTHRALGIA [None]
  - ASTHENIA [None]
  - BACK PAIN [None]
  - FATIGUE [None]
  - GASTRIC HAEMORRHAGE [None]
  - GROIN PAIN [None]
